FAERS Safety Report 10186797 (Version 1)
Quarter: 2014Q2

REPORT INFORMATION
  Report Type: Report from Study
  Country: TR (occurrence: TR)
  Receive Date: 20140521
  Receipt Date: 20140521
  Transmission Date: 20141212
  Serious: Yes (Other)
  Sender: FDA-Public Use
  Company Number: TR-US-EMD SERONO, INC.-7292452

PATIENT
  Sex: Female
  Weight: 57 kg

DRUGS (4)
  1. REBIF [Suspect]
     Indication: MULTIPLE SCLEROSIS
  2. EFEXOR XR /01233801/ [Suspect]
     Indication: ANXIETY DISORDER
  3. LEVOCETIRIZINE [Suspect]
     Indication: GOITRE
  4. MIRTAZAPINE [Suspect]
     Indication: ANTIDEPRESSANT THERAPY

REACTIONS (1)
  - Diabetes mellitus [Not Recovered/Not Resolved]
